FAERS Safety Report 9029429 (Version 1)
Quarter: 2013Q1

REPORT INFORMATION
  Report Type: Spontaneous
  Country: SE (occurrence: SE)
  Receive Date: 20130125
  Receipt Date: 20130125
  Transmission Date: 20140127
  Serious: Yes (Hospitalization)
  Sender: FDA-Public Use
  Company Number: SE-JNJFOC-20130109447

PATIENT
  Age: 65 Year
  Sex: 0

DRUGS (6)
  1. REMICADE [Suspect]
     Indication: COLITIS ULCERATIVE
     Route: 042
     Dates: start: 200901
  2. KALCIPOS-D [Concomitant]
     Route: 065
  3. BETOLVEX [Concomitant]
     Route: 065
  4. PROSCAR [Concomitant]
     Route: 065
  5. ASACOL [Concomitant]
     Route: 065
  6. PURINETHOL [Concomitant]
     Route: 065

REACTIONS (2)
  - Malignant urinary tract neoplasm [Not Recovered/Not Resolved]
  - Neoplasm malignant [Not Recovered/Not Resolved]
